FAERS Safety Report 7327601-5 (Version None)
Quarter: 2011Q1

REPORT INFORMATION
  Report Type: 
  Country: None (occurrence: None)
  Receive Date: 20110303
  Receipt Date: 20110215
  Transmission Date: 20110831
  Serious: Yes (Other)
  Sender: FDA-Public Use
  Company Number: 2009BI029743

PATIENT
  Age: 41 Year
  Sex: Male

DRUGS (2)
  1. TYSABRI [Suspect]
     Route: 042
     Dates: start: 20090227, end: 20090605
  2. TYSABRI [Suspect]
     Indication: MULTIPLE SCLEROSIS
     Route: 042
     Dates: start: 20050101, end: 20050201

REACTIONS (5)
  - ASPARTATE AMINOTRANSFERASE INCREASED [None]
  - MULTIPLE SCLEROSIS RELAPSE [None]
  - FALL [None]
  - ALANINE AMINOTRANSFERASE INCREASED [None]
  - SUICIDAL IDEATION [None]
